FAERS Safety Report 6615409-5 (Version None)
Quarter: 2010Q1

REPORT INFORMATION
  Report Type: 
  Country: None (occurrence: None)
  Receive Date: 20100305
  Receipt Date: 20091204
  Transmission Date: 20100710
  Serious: No
  Sender: FDA-Public Use
  Company Number: A0816865A

PATIENT
  Sex: Female
  Weight: 88.6 kg

DRUGS (14)
  1. REQUIP [Suspect]
     Indication: RESTLESS LEGS SYNDROME
     Dosage: 1MG PER DAY
     Route: 048
     Dates: start: 20070310
  2. ROPINIROLE HYDROCHLORIDE [Suspect]
     Indication: RESTLESS LEGS SYNDROME
     Route: 048
  3. NEURONTIN [Concomitant]
  4. ZOLOFT [Concomitant]
  5. DAYPRO [Concomitant]
  6. XANAX [Concomitant]
  7. AMBIEN [Concomitant]
  8. METHADONE HCL [Concomitant]
     Dates: start: 20080701
  9. DETROL [Concomitant]
  10. HYZAAR [Concomitant]
  11. ULTRAM [Concomitant]
  12. CYMBALTA [Concomitant]
  13. OXAPROZIN [Concomitant]
  14. SANCTURA [Concomitant]

REACTIONS (1)
  - ADVERSE EVENT [None]
